FAERS Safety Report 9154170 (Version 1)
Quarter: 2013Q1

REPORT INFORMATION
  Report Type: Spontaneous
  Country: US (occurrence: US)
  Receive Date: 20130311
  Receipt Date: 20130311
  Transmission Date: 20140127
  Serious: No
  Sender: FDA-Public Use
  Company Number: US-PFIZER INC-2013081288

PATIENT
  Age: 33 Year
  Sex: Male
  Weight: 83.9 kg

DRUGS (2)
  1. CHANTIX [Suspect]
     Indication: SMOKING CESSATION THERAPY
     Dosage: UNK
     Dates: start: 20130107
  2. MUCINEX [Suspect]
     Indication: RHINORRHOEA
     Dosage: UNK, SINGLE (ONCE)
     Dates: start: 201303, end: 201303

REACTIONS (1)
  - Dyspepsia [Not Recovered/Not Resolved]
